FAERS Safety Report 24818742 (Version 1)
Quarter: 2025Q1

REPORT INFORMATION
  Report Type: Spontaneous
  Country: US (occurrence: None)
  Receive Date: 20250107
  Receipt Date: 20250107
  Transmission Date: 20250408
  Serious: Yes (Disabling, Other)
  Sender: FDA-CTU
  Company Number: None

PATIENT
  Age: 27 Year
  Sex: Male
  Weight: 86.85 kg

DRUGS (3)
  1. ESCITALOPRAM [Suspect]
     Active Substance: ESCITALOPRAM OXALATE
     Indication: Panic attack
  2. SERTRALINE [Suspect]
     Active Substance: SERTRALINE HYDROCHLORIDE
  3. TRINTELLIX [Suspect]
     Active Substance: VORTIOXETINE HYDROBROMIDE

REACTIONS (5)
  - Genital hypoaesthesia [None]
  - Erectile dysfunction [None]
  - Libido decreased [None]
  - Ejaculation disorder [None]
  - Product administration interrupted [None]

NARRATIVE: CASE EVENT DATE: 20230921
